FAERS Safety Report 9734671 (Version 1)
Quarter: 2013Q4

REPORT INFORMATION
  Report Type: Spontaneous
  Country: US (occurrence: None)
  Receive Date: 20131204
  Receipt Date: 20131204
  Transmission Date: 20140711
  Serious: Yes (Hospitalization)
  Sender: FDA-Public Use
  Company Number: None

PATIENT
  Age: 56 Year
  Sex: Male
  Weight: 77.3 kg

DRUGS (1)
  1. REGORAFENIB [Suspect]
     Indication: RECTAL CANCER
     Route: 048
     Dates: start: 20131007, end: 20131116

REACTIONS (4)
  - Abdominal pain upper [None]
  - Dyspnoea [None]
  - Gastrointestinal disorder [None]
  - Appendicectomy [None]
